FAERS Safety Report 22829823 (Version 2)
Quarter: 2024Q1

REPORT INFORMATION
  Report Type: Report from Study
  Country: US (occurrence: US)
  Receive Date: 20230816
  Receipt Date: 20240219
  Transmission Date: 20240410
  Serious: No
  Sender: FDA-Public Use
  Company Number: US-AURINIA PHARMACEUTICALS INC.-AUR-003689

PATIENT
  Sex: Male

DRUGS (5)
  1. LUPKYNIS [Suspect]
     Active Substance: VOCLOSPORIN
     Indication: Lupus nephritis
     Dosage: 15.8 MILLIGRAM, BID
     Route: 048
     Dates: start: 20220726
  2. LUPKYNIS [Suspect]
     Active Substance: VOCLOSPORIN
     Dosage: 15.8 MILLIGRAM, BID
     Route: 048
     Dates: start: 20220726
  3. HERBALS [Suspect]
     Active Substance: HERBALS
     Indication: Product used for unknown indication
  4. HERBALS [Suspect]
     Active Substance: HERBALS
     Indication: Product used for unknown indication
  5. REISHI [Suspect]
     Active Substance: REISHI
     Indication: Product used for unknown indication

REACTIONS (4)
  - Diarrhoea [Unknown]
  - Protein total increased [Unknown]
  - Scan abnormal [Unknown]
  - Overdose [Unknown]
